FAERS Safety Report 5105176-9 (Version None)
Quarter: 2006Q3

REPORT INFORMATION
  Report Type: 
  Country: None (occurrence: None)
  Receive Date: 20060911
  Receipt Date: 20060829
  Transmission Date: 20061208
  Serious: Yes (Other)
  Sender: FDA-Public Use
  Company Number: 2006105776

PATIENT
  Age: 75 Year
  Sex: Male
  Weight: 65.7716 kg

DRUGS (8)
  1. NEURONTIN [Suspect]
     Indication: KNEE ARTHROPLASTY
  2. LYRICA [Suspect]
     Indication: NEUROPATHY
     Dosage: 100 MG (50 MG, 2 IN 1 D), UNKNOWN
     Dates: start: 20060201
  3. OMEPRAZOLE [Concomitant]
  4. NIFEDIPINE [Concomitant]
  5. PENTOXIFYLLINE [Concomitant]
  6. TEMAZEPAM [Concomitant]
  7. AMITRIPTYLINE HCL [Concomitant]
  8. ASPIRIN [Concomitant]

REACTIONS (8)
  - DISORIENTATION [None]
  - DIZZINESS [None]
  - DYSSTASIA [None]
  - FALL [None]
  - INADEQUATE ANALGESIA [None]
  - NASOPHARYNGITIS [None]
  - OEDEMA PERIPHERAL [None]
  - PAIN IN EXTREMITY [None]
